FAERS Safety Report 8597696-X (Version None)
Quarter: 2012Q3

REPORT INFORMATION
  Report Type: 
  Country: None (occurrence: None)
  Receive Date: 20120816
  Receipt Date: 20120810
  Transmission Date: 20120928
  Serious: Yes (Hospitalization)
  Sender: FDA-Public Use
  Company Number: CH-PFIZER INC-2012198082

PATIENT

DRUGS (1)
  1. GENOTROPIN [Suspect]

REACTIONS (1)
  - ENDOCRINE DISORDER [None]
